FAERS Safety Report 8296158-7 (Version None)
Quarter: 2012Q2

REPORT INFORMATION
  Report Type: 
  Country: None (occurrence: None)
  Receive Date: 20120418
  Receipt Date: 20120413
  Transmission Date: 20120825
  Serious: Yes (Death)
  Sender: FDA-Public Use
  Company Number: JP-GLAXOSMITHKLINE-B0796368A

PATIENT
  Sex: Male

DRUGS (6)
  1. ZYPREXA [Concomitant]
     Route: 048
  2. FLUNITRAZEPAM [Concomitant]
     Route: 048
  3. DEPAKENE [Concomitant]
     Dosage: 400MG PER DAY
     Route: 048
  4. LAMICTAL [Suspect]
     Indication: BIPOLAR DISORDER
     Dosage: 100MG PER DAY
     Route: 048
     Dates: start: 20120208, end: 20120321
  5. EBRANTIL [Concomitant]
     Dosage: 4IUAX PER DAY
     Route: 048
  6. UNKNOWN DRUG [Concomitant]
     Route: 048

REACTIONS (2)
  - RASH [None]
  - COMPLETED SUICIDE [None]
